FAERS Safety Report 5812122-9 (Version None)
Quarter: 2008Q3

REPORT INFORMATION
  Report Type: 
  Country: None (occurrence: None)
  Receive Date: 20080716
  Receipt Date: 20080708
  Transmission Date: 20090109
  Serious: Yes (Hospitalization)
  Sender: FDA-Public Use
  Company Number: US-WATSON-2008-04077

PATIENT
  Age: 77 Year
  Sex: Male

DRUGS (10)
  1. CYCLOBENZAPRINE HYDROCHLORIDE (WATSON LABORATORIES) [Suspect]
     Indication: BACK PAIN
     Dosage: 10 MG, TID FOR ABOUT 3 WEEKS
     Route: 048
     Dates: start: 20080601, end: 20080704
  2. MOBIC [Concomitant]
     Indication: ARTHRITIS
     Dosage: UNK
     Route: 048
  3. VISTARIL                           /00058402/ [Concomitant]
     Indication: PRURITUS
     Dosage: 25 MG, BID
     Route: 048
  4. TRICOR                             /00499301/ [Concomitant]
     Indication: BLOOD CHOLESTEROL
     Dosage: 54 MG, DAILY
     Route: 048
  5. NORVASC [Concomitant]
     Indication: BLOOD PRESSURE
     Dosage: 2.5 MG, DAILY
     Route: 048
  6. PLAVIX [Concomitant]
     Indication: DRUG USE FOR UNKNOWN INDICATION
     Dosage: 75 MG, DAILY
     Route: 048
  7. ZOCOR [Concomitant]
     Indication: BLOOD CHOLESTEROL
     Dosage: 80 MG, DAILY
     Route: 048
  8. OMEPRAZOLE [Concomitant]
     Indication: ABDOMINAL PAIN UPPER
     Dosage: 20 MG, DAILY
     Route: 048
  9. FLONASE [Concomitant]
     Indication: DRUG USE FOR UNKNOWN INDICATION
     Dosage: UNK
  10. SINGULAIR [Concomitant]
     Indication: DRUG USE FOR UNKNOWN INDICATION
     Dosage: 10 MG, DAILY
     Route: 048

REACTIONS (6)
  - DIZZINESS POSTURAL [None]
  - HEMIPARESIS [None]
  - MUSCULAR WEAKNESS [None]
  - PARAESTHESIA [None]
  - SENSORY LOSS [None]
  - TRANSIENT ISCHAEMIC ATTACK [None]
